FAERS Safety Report 5387422-X (Version None)
Quarter: 2007Q3

REPORT INFORMATION
  Report Type: 
  Country: None (occurrence: None)
  Receive Date: 20070712
  Receipt Date: 20070702
  Transmission Date: 20080115
  Serious: Yes (Death)
  Sender: FDA-Public Use
  Company Number: 2007RR-08339

PATIENT
  Age: 39 Year
  Sex: Female

DRUGS (2)
  1. METFORMIN HCL [Suspect]
     Indication: SUICIDE ATTEMPT
     Dosage: 850 MG, TABLET
  2. INSULIN(INSULIN) UNKNOWN [Suspect]
     Indication: SUICIDE ATTEMPT
     Dosage: 100 UNITS

REACTIONS (20)
  - AGITATION [None]
  - ATRIAL FIBRILLATION [None]
  - BACK PAIN [None]
  - BLOOD GLUCOSE DECREASED [None]
  - BLOOD POTASSIUM DECREASED [None]
  - BLOOD SODIUM INCREASED [None]
  - BODY TEMPERATURE DECREASED [None]
  - CARDIAC ARREST [None]
  - COMPLETED SUICIDE [None]
  - CONTINUOUS HAEMODIAFILTRATION [None]
  - DISEASE PROGRESSION [None]
  - HYPOTENSION [None]
  - HYPOXIA [None]
  - INTENTIONAL OVERDOSE [None]
  - LACTIC ACIDOSIS [None]
  - MULTI-ORGAN FAILURE [None]
  - PULMONARY OEDEMA [None]
  - TACHYPNOEA [None]
  - VASOPLEGIA SYNDROME [None]
  - VENTRICULAR FIBRILLATION [None]
